FAERS Safety Report 6744701-9 (Version None)
Quarter: 2010Q2

REPORT INFORMATION
  Report Type: 
  Country: None (occurrence: None)
  Receive Date: 20100526
  Receipt Date: 20100526
  Transmission Date: 20101027
  Serious: Yes (Death, Hospitalization)
  Sender: FDA-Public Use
  Company Number: None

PATIENT
  Age: 55 Year
  Sex: Male

DRUGS (1)
  1. REVLIMID [Suspect]
     Indication: MULTIPLE MYELOMA
     Dosage: 25MG ORALLY
     Route: 048
     Dates: start: 20100413, end: 20100509

REACTIONS (7)
  - BACK PAIN [None]
  - CARDIAC ARREST [None]
  - COUGH [None]
  - HAEMOPTYSIS [None]
  - PYREXIA [None]
  - RESPIRATORY DISTRESS [None]
  - SOMNOLENCE [None]
